FAERS Safety Report 7214589-0 (Version None)
Quarter: 2011Q1

REPORT INFORMATION
  Report Type: 
  Country: None (occurrence: None)
  Receive Date: 20110107
  Receipt Date: 20101229
  Transmission Date: 20110831
  Serious: Yes (Death, Hospitalization)
  Sender: FDA-Public Use
  Company Number: US-SANOFI-AVENTIS-2011SA001032

PATIENT
  Age: 69 Year
  Sex: Male

DRUGS (6)
  1. BLINDED THERAPY [Suspect]
     Indication: PROSTATE CANCER
     Route: 042
     Dates: start: 20101026, end: 20101026
  2. JEVTANA KIT [Suspect]
     Route: 041
     Dates: start: 20101210, end: 20101210
  3. BLINDED THERAPY [Suspect]
     Route: 042
     Dates: start: 20101116, end: 20101116
  4. CELEBREX [Concomitant]
     Dates: start: 20060101, end: 20101212
  5. ZOLADEX [Concomitant]
     Dates: start: 20031104, end: 20100928
  6. HYDROCORTISONE [Concomitant]
     Dates: start: 20100517, end: 20101212

REACTIONS (5)
  - DYSPNOEA [None]
  - TUMOUR LYSIS SYNDROME [None]
  - DISSEMINATED INTRAVASCULAR COAGULATION [None]
  - MULTI-ORGAN FAILURE [None]
  - CARDIO-RESPIRATORY ARREST [None]
